FAERS Safety Report 9246981 (Version 1)
Quarter: 2013Q2

REPORT INFORMATION
  Report Type: Spontaneous
  Country: US (occurrence: US)
  Receive Date: 20130422
  Receipt Date: 20130422
  Transmission Date: 20140414
  Serious: No
  Sender: FDA-Public Use
  Company Number: US-009507513-1304USA007708

PATIENT
  Sex: Female

DRUGS (3)
  1. NUVARING [Suspect]
     Dosage: 1 DF, 1 RING PER CYCLE
     Route: 067
     Dates: start: 2013
  2. NUVARING [Suspect]
     Dosage: 1 DF, 1 RING PER CYCLE
     Route: 067
     Dates: start: 20130407, end: 20130412
  3. NUVARING [Suspect]
     Dosage: 1 DF, 1 RING PER CYCLE
     Route: 067
     Dates: start: 20130412

REACTIONS (3)
  - Incorrect drug administration duration [Unknown]
  - Device expulsion [Unknown]
  - No adverse event [Unknown]
